FAERS Safety Report 9562111 (Version 2)
Quarter: 2013Q4

REPORT INFORMATION
  Report Type: Report from Study
  Country: JP (occurrence: JP)
  Receive Date: 20130927
  Receipt Date: 20131018
  Transmission Date: 20140711
  Serious: Yes (Hospitalization)
  Sender: FDA-Public Use
  Company Number: JP-PFIZER INC-2013270438

PATIENT
  Age: 64 Year
  Sex: Male
  Weight: 75.5 kg

DRUGS (5)
  1. AXITINIB [Suspect]
     Indication: RENAL CELL CARCINOMA
     Dosage: 5 MG TWICE DAILY
     Route: 048
     Dates: start: 20110130, end: 20130909
  2. NORVASC [Concomitant]
     Indication: HYPERTENSION
     Dosage: 10 MG, 1X/DAY
     Route: 048
     Dates: start: 20110818
  3. MICARDIS [Concomitant]
     Indication: HYPERTENSION
     Dosage: 40 MG, 1X/DAY
     Route: 048
     Dates: start: 20110118
  4. TAKEPRON [Concomitant]
     Indication: ABDOMINAL DISCOMFORT
     Dosage: 15 MG, 1X/DAY
     Route: 048
     Dates: start: 20110915
  5. GASLON [Concomitant]
     Indication: ABDOMINAL DISCOMFORT
     Dosage: 2 MG, 2X/DAY
     Route: 048
     Dates: start: 20110818

REACTIONS (1)
  - Pneumonia [Recovering/Resolving]
